FAERS Safety Report 5142638-2 (Version None)
Quarter: 2006Q4

REPORT INFORMATION
  Report Type: 
  Country: None (occurrence: None)
  Receive Date: 20061102
  Receipt Date: 20061030
  Transmission Date: 20070319
  Serious: Yes (Hospitalization)
  Sender: FDA-Public Use
  Company Number: US-BOEHRINGER INGELHEIM PHARMACEUTICALS, INC.-2006-DE-05719GD

PATIENT

DRUGS (1)
  1. CLONIDINE [Suspect]
     Route: 048

REACTIONS (3)
  - HYPOTENSION [None]
  - MEDICATION ERROR [None]
  - WRONG DRUG ADMINISTERED [None]
